FAERS Safety Report 5492683-2 (Version None)
Quarter: 2007Q4

REPORT INFORMATION
  Report Type: 
  Country: None (occurrence: None)
  Receive Date: 20071023
  Receipt Date: 20071018
  Transmission Date: 20080405
  Serious: Yes (Other)
  Sender: FDA-Public Use
  Company Number: US-RB-008344-07

PATIENT
  Sex: Male

DRUGS (3)
  1. SUBOXONE [Suspect]
     Dosage: 4MG INITIAL DOSE IN OFFICE
     Route: 060
     Dates: start: 20071011, end: 20071011
  2. SUBOXONE [Suspect]
     Route: 060
     Dates: start: 20071012
  3. ZANBARS [Suspect]
     Indication: DRUG USE FOR UNKNOWN INDICATION
     Dosage: DOSAGE UNKNOWN.
     Route: 065
     Dates: end: 20071001

REACTIONS (2)
  - CONVULSION [None]
  - HALLUCINATION [None]
